FAERS Safety Report 15056819 (Version 1)
Quarter: 2018Q2

REPORT INFORMATION
  Report Type: Spontaneous
  Country: US (occurrence: US)
  Receive Date: 20180604
  Receipt Date: 20180604
  Transmission Date: 20180711
  Serious: Yes (Life-Threatening)
  Sender: FDA-Public Use
  Company Number: None

PATIENT
  Age: 70 Year
  Sex: Male
  Weight: 101 kg

DRUGS (2)
  1. LEVAQUIN [Concomitant]
     Active Substance: LEVOFLOXACIN
  2. CEFTRIAXONE. [Suspect]
     Active Substance: CEFTRIAXONE
     Indication: PNEUMONIA
     Route: 042
     Dates: start: 20180326, end: 20180327

REACTIONS (4)
  - Tachycardia [None]
  - Hypotension [None]
  - Rash [None]
  - Oxygen saturation decreased [None]

NARRATIVE: CASE EVENT DATE: 20180328
